FAERS Safety Report 26183341 (Version 1)
Quarter: 2025Q4

REPORT INFORMATION
  Report Type: Spontaneous
  Country: US (occurrence: US)
  Receive Date: 20251221
  Receipt Date: 20251221
  Transmission Date: 20260117
  Serious: No
  Sender: MERCK SHARP & DOHME LLC
  Company Number: US-009507513-2356807

PATIENT
  Age: 2 Month
  Sex: Female

DRUGS (1)
  1. ENFLONSIA [Suspect]
     Active Substance: CLESROVIMAB-CFOR
     Indication: Prophylaxis
     Dates: start: 20251107, end: 20251107

REACTIONS (2)
  - Pyrexia [Recovered/Resolved]
  - Bacterial test positive [Recovered/Resolved]

NARRATIVE: CASE EVENT DATE: 20250101
